FAERS Safety Report 26031725 (Version 1)
Quarter: 2025Q4

REPORT INFORMATION
  Report Type: Spontaneous
  Country: US (occurrence: US)
  Receive Date: 20251112
  Receipt Date: 20251112
  Transmission Date: 20260117
  Serious: Yes (Hospitalization, Other)
  Sender: PHARMOBEDIENT CONSULTING, LLC
  Company Number: US-Pharmobedient-000311

PATIENT
  Age: 6 Decade
  Sex: Female
  Weight: 0 kg

DRUGS (3)
  1. PAROXETINE [Interacting]
     Active Substance: PAROXETINE
     Indication: Product used for unknown indication
     Dosage: SUPRATHERAPEUTIC
  2. ABILIFY [Interacting]
     Active Substance: ARIPIPRAZOLE
     Indication: Product used for unknown indication
     Dosage: 5 MG AND 10 MG
  3. BENZTROPINE [Concomitant]
     Active Substance: BENZTROPINE
     Indication: Product used for unknown indication

REACTIONS (4)
  - Labelled drug-drug interaction issue [Unknown]
  - Serotonin syndrome [Recovering/Resolving]
  - Drug level above therapeutic [Unknown]
  - Product prescribing error [Unknown]
